FAERS Safety Report 5269390-4 (Version None)
Quarter: 2007Q1

REPORT INFORMATION
  Report Type: 
  Country: None (occurrence: None)
  Receive Date: 20070316
  Receipt Date: 20070316
  Transmission Date: 20070707
  Serious: No
  Sender: FDA-Public Use
  Company Number: None

PATIENT
  Sex: Female
  Weight: 72.5755 kg

DRUGS (5)
  1. DIAZEPAM [Suspect]
     Indication: ANXIETY
     Dosage: 5 MG TID P.O.
     Route: 048
     Dates: start: 20061101, end: 20061201
  2. WARFARIN SODIUM [Concomitant]
  3. LIPITOR [Concomitant]
  4. COZAAR [Concomitant]
  5. AMBIEN [Concomitant]

REACTIONS (4)
  - ABDOMINAL PAIN [None]
  - ABDOMINAL PAIN UPPER [None]
  - DRUG INEFFECTIVE [None]
  - PHARMACEUTICAL PRODUCT COMPLAINT [None]
